FAERS Safety Report 21893898 (Version 1)
Quarter: 2023Q1

REPORT INFORMATION
  Report Type: Spontaneous
  Country: GB (occurrence: GB)
  Receive Date: 20230121
  Receipt Date: 20230121
  Transmission Date: 20230418
  Serious: Yes (Other)
  Sender: FDA-Public Use
  Company Number: GB-MHRA-MED-202301091131106790-PKNJC

PATIENT
  Age: 23 Year
  Sex: Female

DRUGS (1)
  1. CEPHALEXIN [Suspect]
     Active Substance: CEPHALEXIN
     Indication: Product used for unknown indication
     Dosage: 500 MILLIGRAM, ONCE A DAY (AT NIGHT;)
     Route: 065

REACTIONS (2)
  - Illness [Recovered/Resolved]
  - Medication error [Unknown]
